FAERS Safety Report 25637739 (Version 1)
Quarter: 2025Q3

REPORT INFORMATION
  Report Type: Spontaneous
  Country: US (occurrence: US)
  Receive Date: 20250804
  Receipt Date: 20250804
  Transmission Date: 20251021
  Serious: No
  Sender: CHATTEM
  Company Number: US-OPELLA-2025OHG023248

PATIENT

DRUGS (2)
  1. NICODERM CQ [Suspect]
     Active Substance: NICOTINE
     Indication: Product used for unknown indication
     Route: 065
  2. NICODERM CQ [Suspect]
     Active Substance: NICOTINE
     Route: 065

REACTIONS (3)
  - Product quality issue [Unknown]
  - Therapeutic product effect incomplete [Unknown]
  - No adverse event [Unknown]
